FAERS Safety Report 13384738 (Version 1)
Quarter: 2017Q1

REPORT INFORMATION
  Report Type: Spontaneous
  Country: US (occurrence: US)
  Receive Date: 20170329
  Receipt Date: 20170329
  Transmission Date: 20170429
  Serious: Yes (Death, Hospitalization)
  Sender: FDA-Public Use
  Company Number: None

PATIENT
  Age: 45 Year
  Sex: Female
  Weight: 119 kg

DRUGS (12)
  1. TORSEMIDE. [Concomitant]
     Active Substance: TORSEMIDE
  2. ZIPRASIDONE. [Concomitant]
     Active Substance: ZIPRASIDONE
  3. DULOXETINE. [Concomitant]
     Active Substance: DULOXETINE
  4. ACETAMINOPHEN. [Concomitant]
     Active Substance: ACETAMINOPHEN
  5. LAMOTRIGINE. [Concomitant]
     Active Substance: LAMOTRIGINE
  6. METOCLOPRAMIDE. [Concomitant]
     Active Substance: METOCLOPRAMIDE
  7. MIRALAX [Concomitant]
     Active Substance: POLYETHYLENE GLYCOL 3350
  8. POTASSIUM CHLORIDE. [Concomitant]
     Active Substance: POTASSIUM CHLORIDE
  9. METOPROLOL XL [Suspect]
     Active Substance: METOPROLOL SUCCINATE
     Indication: CORONARY ARTERY DISEASE
     Route: 048
  10. SPIRONOLACTONE. [Concomitant]
     Active Substance: SPIRONOLACTONE
  11. ASPIRIN. [Concomitant]
     Active Substance: ASPIRIN
  12. CLONAZEPAM. [Concomitant]
     Active Substance: CLONAZEPAM

REACTIONS (8)
  - Pneumonia [None]
  - Acute respiratory failure [None]
  - Respiratory arrest [None]
  - Respiratory failure [None]
  - Cardiac arrest [None]
  - Sinus bradycardia [None]
  - Shock [None]
  - Pulmonary embolism [None]

NARRATIVE: CASE EVENT DATE: 20170227
